FAERS Safety Report 10605768 (Version 2)
Quarter: 2014Q4

REPORT INFORMATION
  Report Type: Spontaneous
  Country: GB (occurrence: GB)
  Receive Date: 20141125
  Receipt Date: 20141206
  Transmission Date: 20150529
  Serious: Yes (Hospitalization, Other)
  Sender: FDA-Public Use
  Company Number: GB-AUROBINDO-AUR-APL-2014-12331

PATIENT
  Age: 65 Year
  Sex: Male

DRUGS (5)
  1. CITALOPRAM [Suspect]
     Active Substance: CITALOPRAM HYDROBROMIDE
     Indication: MOOD ALTERED
     Dosage: UNK
     Route: 065
  2. LERCANIDIPINE [Suspect]
     Active Substance: LERCANIDIPINE
     Indication: BLOOD PRESSURE
     Dosage: UNK
     Route: 065
  3. RAMIPRIL. [Suspect]
     Active Substance: RAMIPRIL
     Indication: BLOOD PRESSURE
     Dosage: UNK
     Route: 065
  4. INDAPAMIDE. [Suspect]
     Active Substance: INDAPAMIDE
     Indication: BLOOD PRESSURE
     Dosage: UNK
     Route: 065
  5. ADALIMUMAB [Concomitant]
     Active Substance: ADALIMUMAB
     Indication: ANKYLOSING SPONDYLITIS
     Dosage: UNK
     Route: 065

REACTIONS (20)
  - Inappropriate antidiuretic hormone secretion [Recovered/Resolved]
  - Quadriparesis [Recovered/Resolved]
  - Tardive dyskinesia [Recovered/Resolved]
  - Vision blurred [Recovered/Resolved]
  - Fall [Recovered/Resolved]
  - Dysphagia [Recovered/Resolved]
  - Tremor [Recovered/Resolved]
  - Parkinsonism [Recovered/Resolved]
  - Confusional state [Recovered/Resolved]
  - Nuchal rigidity [Recovered/Resolved]
  - Gait disturbance [Recovered/Resolved]
  - Mutism [Recovered/Resolved]
  - Neurological decompensation [Recovered/Resolved]
  - Apraxia [Recovered/Resolved]
  - Nausea [Recovered/Resolved]
  - Cognitive disorder [Recovered/Resolved]
  - Hyponatraemia [Recovered/Resolved]
  - Dyskinesia [Recovered/Resolved]
  - Resting tremor [Recovered/Resolved]
  - Weight decreased [Recovered/Resolved]
